FAERS Safety Report 11259990 (Version 1)
Quarter: 2015Q3

REPORT INFORMATION
  Report Type: Spontaneous
  Country: US (occurrence: US)
  Receive Date: 20150710
  Receipt Date: 20150710
  Transmission Date: 20151125
  Serious: Yes (Other)
  Sender: FDA-Public Use
  Company Number: US-TEVA-576849USA

PATIENT
  Age: 80 Year
  Sex: Female

DRUGS (2)
  1. DIAMOX SEQUELS [Suspect]
     Active Substance: ACETAZOLAMIDE
     Indication: NORMAL PRESSURE HYDROCEPHALUS
     Dosage: 125 MILLIGRAM DAILY;
     Route: 048
  2. DIAMOX SEQUELS [Suspect]
     Active Substance: ACETAZOLAMIDE
     Indication: NORMAL PRESSURE HYDROCEPHALUS
     Dosage: 250 MILLIGRAM DAILY; AT ONE MONTH
     Route: 048

REACTIONS (2)
  - Lacunar infarction [Recovering/Resolving]
  - Off label use [Unknown]
